FAERS Safety Report 10048732 (Version 1)
Quarter: 2014Q1

REPORT INFORMATION
  Report Type: Spontaneous
  Country: FR (occurrence: FR)
  Receive Date: 20140331
  Receipt Date: 20140331
  Transmission Date: 20141002
  Serious: Yes (Hospitalization)
  Sender: FDA-Public Use
  Company Number: FR-TEVA-470126ISR

PATIENT
  Age: 67 Year
  Sex: Male

DRUGS (8)
  1. DOXORUBICINE TEVA [Suspect]
     Indication: HODGKIN^S DISEASE
     Dosage: 5 CYCLES OF ABVD-MP PROTOCOL PLUS 2 CYCLES WITHOUT BLEOMYCIN
     Route: 042
     Dates: start: 20060517, end: 200611
  2. BLEOMYCINE [Suspect]
     Indication: HODGKIN^S DISEASE
     Dosage: 5 CYCLES OF ABVD-MP PROTOCOL
     Route: 042
     Dates: start: 20060517, end: 200609
  3. VELBE [Suspect]
     Indication: HODGKIN^S DISEASE
     Dosage: 5 CYCLES OF ABVD-MP PROTOCOL PLUS 2 CYCLES WITHOUT BLEOMYCIN
     Route: 042
     Dates: start: 20060517, end: 200611
  4. DETICENE [Suspect]
     Indication: HODGKIN^S DISEASE
     Dosage: 5 CYCLES OF ABVD-MP PROTOCOL PLUS 2 CYCLES WITHOUT BLEOMYCIN
     Route: 042
     Dates: start: 20060517, end: 200611
  5. SOLUMEDROL [Suspect]
     Indication: HODGKIN^S DISEASE
     Dosage: 5 CYCLES OF ABVD-MP PROTOCOL PLUS 2 CYCLES WITHOUT BLEOMYCIN
     Route: 042
     Dates: start: 20060517, end: 200611
  6. SINTROM [Concomitant]
  7. CORTANCYL [Concomitant]
     Dosage: 60 MILLIGRAM DAILY;
  8. MOPRAL [Concomitant]
     Dosage: 20 MILLIGRAM DAILY;

REACTIONS (3)
  - Pulmonary fibrosis [Recovered/Resolved with Sequelae]
  - Interstitial lung disease [Recovered/Resolved with Sequelae]
  - Respiratory distress [Recovered/Resolved with Sequelae]
